FAERS Safety Report 7624141-0 (Version None)
Quarter: 2011Q3

REPORT INFORMATION
  Report Type: 
  Country: None (occurrence: None)
  Receive Date: 20110720
  Receipt Date: 20110607
  Transmission Date: 20111222
  Serious: Yes (Other)
  Sender: FDA-Public Use
  Company Number: PHHY2011US60991

PATIENT
  Sex: Male
  Weight: 2.28 kg

DRUGS (6)
  1. PROGRAF [Concomitant]
     Route: 064
  2. PROCARDIA [Concomitant]
     Route: 064
  3. TERBUTALINE [Concomitant]
     Route: 064
  4. PRENATAL VITAMINS [Concomitant]
     Route: 064
  5. MYFORTIC [Suspect]
     Route: 064
  6. IRON SUPPLEMENTS [Concomitant]
     Route: 064

REACTIONS (2)
  - MATERNAL EXPOSURE DURING PREGNANCY [None]
  - PREMATURE BABY [None]
